FAERS Safety Report 4951796-1 (Version None)
Quarter: 2006Q1

REPORT INFORMATION
  Report Type: 
  Country: None (occurrence: None)
  Receive Date: 20060322
  Receipt Date: 20060322
  Transmission Date: 20060701
  Serious: Yes (Hospitalization)
  Sender: FDA-Public Use
  Company Number: None

PATIENT
  Age: 61 Year
  Sex: Male
  Weight: 87.9 kg

DRUGS (3)
  1. HYDROCHLOROTHIAZIDE [Suspect]
  2. HCTZ 25 MG /LISINOPRIL [Concomitant]
  3. IBUPROFEN [Concomitant]

REACTIONS (1)
  - HYPONATRAEMIA [None]
